FAERS Safety Report 8883710 (Version 2)
Quarter: 2013Q1

REPORT INFORMATION
  Report Type: Spontaneous
  Country: US (occurrence: US)
  Receive Date: 20121102
  Receipt Date: 20130204
  Transmission Date: 20140127
  Serious: No
  Sender: FDA-Public Use
  Company Number: US-GLAXOSMITHKLINE-A0992169A

PATIENT
  Age: 77 Year
  Sex: Female
  Weight: 61.4 kg

DRUGS (7)
  1. HORIZANT [Suspect]
     Indication: RESTLESS LEGS SYNDROME
     Dosage: 600MG AT NIGHT
     Route: 048
     Dates: start: 20120717, end: 20120916
  2. TRAMADOL [Concomitant]
     Indication: PAIN
  3. KLOR-CON [Concomitant]
     Indication: BLOOD POTASSIUM
  4. NORTRIPTYLINE [Concomitant]
     Indication: FIBROMYALGIA
  5. AMLODIPINE [Concomitant]
     Indication: BLOOD PRESSURE
  6. LOSARTAN [Concomitant]
     Indication: BLOOD PRESSURE
  7. MIRAPEX [Concomitant]
     Indication: RESTLESS LEGS SYNDROME

REACTIONS (10)
  - Somnolence [Recovered/Resolved]
  - Dizziness [Recovered/Resolved]
  - Asthenia [Recovered/Resolved]
  - Feeling drunk [Recovered/Resolved]
  - Fatigue [Recovered/Resolved]
  - Sluggishness [Recovered/Resolved]
  - Asthenia [Recovered/Resolved]
  - Emotional distress [Recovered/Resolved]
  - Constipation [Recovered/Resolved]
  - Dyspepsia [Recovered/Resolved]
